FAERS Safety Report 11192963 (Version 1)
Quarter: 2015Q2

REPORT INFORMATION
  Report Type: Spontaneous
  Country: US (occurrence: None)
  Receive Date: 20150603
  Receipt Date: 20150603
  Transmission Date: 20150821
  Serious: No
  Sender: FDA-Public Use
  Company Number: 2015TASUS000700

PATIENT
  Age: 45 Year
  Sex: Male

DRUGS (7)
  1. HETLIOZ [Suspect]
     Active Substance: TASIMELTEON
     Indication: CIRCADIAN RHYTHM SLEEP DISORDER
     Route: 048
     Dates: start: 20150203, end: 20150210
  2. MELATONIN (MELATONIN) [Concomitant]
     Active Substance: MELATONIN
  3. VENLAFAXINE HCL [Concomitant]
     Active Substance: VENLAFAXINE HYDROCHLORIDE
  4. GABAPENTIN (GABAPENTIN) [Concomitant]
     Active Substance: GABAPENTIN
  5. TRAMADOL HYDROCHLORIDE. [Concomitant]
     Active Substance: TRAMADOL HYDROCHLORIDE
  6. CYCLOBENZAPRINE HC (CYCLOBENZAPRINE) [Concomitant]
  7. OXYCODONE AND ACETAMINOPHEN (OXYCODONE HYDROCHLORIDE, PARACETAMOL) [Concomitant]

REACTIONS (3)
  - Movement disorder [None]
  - Unevaluable event [None]
  - Asthenia [None]

NARRATIVE: CASE EVENT DATE: 2015
